FAERS Safety Report 13099716 (Version 2)
Quarter: 2017Q1

REPORT INFORMATION
  Report Type: Report from Study
  Country: ES (occurrence: ES)
  Receive Date: 20170110
  Receipt Date: 20170213
  Transmission Date: 20170428
  Serious: Yes (Hospitalization)
  Sender: FDA-Public Use
  Company Number: ES-ROCHE-1874562

PATIENT
  Age: 61 Year
  Sex: Male
  Weight: 82.6 kg

DRUGS (10)
  1. LOPERAMIDE [Concomitant]
     Active Substance: LOPERAMIDE
     Indication: DIARRHOEA
     Route: 048
     Dates: start: 20161218
  2. PERMIXON [Concomitant]
     Active Substance: SAW PALMETTO
     Indication: BENIGN PROSTATIC HYPERPLASIA
     Route: 048
  3. 5-FU [Suspect]
     Active Substance: FLUOROURACIL
     Indication: COLORECTAL CANCER METASTATIC
     Dosage: DATE AND DOSE OF FLUOROURACIL PRIOR TO EVENT (BOLUS)- 07/DEC/2016, DOSE- 830 MG (14 TH CYCLE)
     Route: 040
     Dates: start: 20160609
  4. 5-FU [Suspect]
     Active Substance: FLUOROURACIL
     Dosage: DATE AND DOSE OF FLUROURACIL PRIOR TO EVENT- 07/DEC/2016, DOSE- 5000 MG (14 TH CYCLE)
     Route: 042
  5. FOLINIC ACID [Suspect]
     Active Substance: LEUCOVORIN
     Indication: COLORECTAL CANCER METASTATIC
     Dosage: DATE AND DOSE OF FOLINIC ACID PRIOR TO EVENT- 07/DEC/2016, DOSE- 830 MG (14 TH CYCLE)
     Route: 042
     Dates: start: 20160609
  6. IRINOTECAN [Suspect]
     Active Substance: IRINOTECAN
     Indication: COLORECTAL CANCER METASTATIC
     Dosage: DATE AND DOSE OF IRINOTECAN PRIOR TO EVENT- 07/DEC/2016, DOSE- 370 MG (14 TH CYCLE)
     Route: 042
     Dates: start: 20160609
  7. ALLOPURINOL. [Concomitant]
     Active Substance: ALLOPURINOL
     Indication: HYPERURICAEMIA
     Route: 048
  8. BEVACIZUMAB [Suspect]
     Active Substance: BEVACIZUMAB
     Indication: COLORECTAL CANCER METASTATIC
     Dosage: DATE AND DOSE OF BEVACIZUMAB PRIOR TO EVENT- 07/DEC/2016, DOSE- 450 MG (14 TH CYCLE)
     Route: 042
     Dates: start: 20160609
  9. ATORVASTATIN [Concomitant]
     Active Substance: ATORVASTATIN
     Indication: DYSLIPIDAEMIA
     Route: 048
  10. TAMSULOSINE [Concomitant]
     Active Substance: TAMSULOSIN HYDROCHLORIDE
     Indication: BENIGN PROSTATIC HYPERPLASIA
     Route: 048

REACTIONS (1)
  - Cerebellar syndrome [Recovered/Resolved]

NARRATIVE: CASE EVENT DATE: 20161216
